FAERS Safety Report 25754073 (Version 1)
Quarter: 2025Q3

REPORT INFORMATION
  Report Type: Spontaneous
  Country: EU (occurrence: EU)
  Receive Date: 20250903
  Receipt Date: 20250903
  Transmission Date: 20251021
  Serious: Yes (Disabling)
  Sender: IDORSIA PHARMACEUTICALS
  Company Number: None

PATIENT
  Age: 58 Year
  Sex: Male
  Weight: 86 kg

DRUGS (2)
  1. QUVIVIQ [Suspect]
     Active Substance: DARIDOREXANT
     Indication: Insomnia
     Dosage: 50 MG 30 MIN. BEFORE SLEEPING
     Route: 048
     Dates: start: 2023
  2. Prisdal [Concomitant]
     Indication: Major depression
     Dosage: 20 MG, QD
     Dates: start: 2015

REACTIONS (3)
  - Hypotension [Recovering/Resolving]
  - Somnolence [Recovering/Resolving]
  - Drug ineffective [Unknown]

NARRATIVE: CASE EVENT DATE: 20230101
